FAERS Safety Report 6810487-2 (Version None)
Quarter: 2010Q2

REPORT INFORMATION
  Report Type: 
  Country: None (occurrence: None)
  Receive Date: 20100630
  Receipt Date: 20100624
  Transmission Date: 20101027
  Serious: Yes (Other)
  Sender: FDA-Public Use
  Company Number: JP-PFIZER INC-2010079142

PATIENT

DRUGS (1)
  1. XALATAN [Suspect]
     Route: 047

REACTIONS (2)
  - INTRAOCULAR PRESSURE DECREASED [None]
  - INTRAOCULAR PRESSURE INCREASED [None]
